FAERS Safety Report 8127343-2 (Version None)
Quarter: 2012Q1

REPORT INFORMATION
  Report Type: 
  Country: None (occurrence: None)
  Receive Date: 20120210
  Receipt Date: 20120201
  Transmission Date: 20120608
  Serious: Yes (Life-Threatening, Hospitalization)
  Sender: FDA-Public Use
  Company Number: IT-BRISTOL-MYERS SQUIBB COMPANY-16378978

PATIENT
  Age: 49 Year
  Sex: Male
  Weight: 62 kg

DRUGS (9)
  1. CISPLATIN [Suspect]
     Indication: NON-SMALL CELL LUNG CANCER
     Route: 042
     Dates: start: 20120117
  2. PEMETREXED DISODIUM [Suspect]
     Indication: NON-SMALL CELL LUNG CANCER
     Route: 042
     Dates: start: 20120117
  3. DEXAMETHASONE [Concomitant]
     Dates: start: 20120116
  4. OMEPRAZOLE [Concomitant]
     Dates: start: 20111227
  5. DEXAMETHASONE SODIUM PHOSPHATE [Concomitant]
     Dates: start: 20120119
  6. FOLIC ACID [Concomitant]
  7. VITAMIN B-12 [Concomitant]
  8. METOCLOPRAMIDE [Concomitant]
     Dates: start: 20120110
  9. ENOXAPARIN SODIUM [Concomitant]
     Dates: start: 20120113

REACTIONS (12)
  - ANAEMIA [None]
  - HYPONATRAEMIA [None]
  - RENAL FAILURE ACUTE [None]
  - NEUTROPENIA [None]
  - FATIGUE [None]
  - DECREASED APPETITE [None]
  - HEARING IMPAIRED [None]
  - HYPERKALAEMIA [None]
  - LEUKOPENIA [None]
  - HYPERGLYCAEMIA [None]
  - THROMBOCYTOPENIA [None]
  - DEHYDRATION [None]
